FAERS Safety Report 17163061 (Version 1)
Quarter: 2019Q4

REPORT INFORMATION
  Report Type: Spontaneous
  Country: US (occurrence: US)
  Receive Date: 20191217
  Receipt Date: 20191217
  Transmission Date: 20200122
  Serious: Yes (Death, Other)
  Sender: FDA-Public Use
  Company Number: US-GLAXOSMITHKLINE-US2019GSK228627

PATIENT
  Sex: Female

DRUGS (1)
  1. PREVACID [Suspect]
     Active Substance: LANSOPRAZOLE
     Indication: PRODUCT USED FOR UNKNOWN INDICATION
     Dosage: UNK
     Route: 065

REACTIONS (8)
  - Subdural haematoma [Fatal]
  - Chronic kidney disease [Not Recovered/Not Resolved]
  - Fall [Fatal]
  - Renal impairment [Unknown]
  - Hypertension [Unknown]
  - Renal injury [Unknown]
  - Atrial fibrillation [Unknown]
  - Dialysis [Unknown]
